FAERS Safety Report 4810250-8 (Version None)
Quarter: 2005Q4

REPORT INFORMATION
  Report Type: 
  Country: None (occurrence: None)
  Receive Date: 20051026
  Receipt Date: 20051013
  Transmission Date: 20060501
  Serious: Yes (Hospitalization)
  Sender: FDA-Public Use
  Company Number: FR-GLAXOSMITHKLINE-B0397788A

PATIENT
  Age: 64 Year
  Sex: Male
  Weight: 85 kg

DRUGS (12)
  1. EPIVIR [Suspect]
     Dosage: 300MG PER DAY
     Route: 048
     Dates: start: 20050118, end: 20050621
  2. ZIAGEN [Suspect]
     Dosage: 600MG PER DAY
     Route: 048
     Dates: start: 20050118, end: 20050621
  3. COMBIVIR [Concomitant]
     Route: 065
     Dates: start: 20050601
  4. MEPRONIZINE [Concomitant]
     Dosage: 1UNIT PER DAY
     Route: 048
     Dates: start: 20050221
  5. VIRAMUNE [Concomitant]
     Dosage: 400MG PER DAY
     Route: 048
     Dates: start: 20050119
  6. EFFEXOR [Concomitant]
     Dosage: 4UNIT PER DAY
     Route: 048
     Dates: start: 20050221
  7. TERCIAN [Concomitant]
     Route: 065
  8. KARDEGIC [Concomitant]
     Route: 065
  9. AMLOR [Concomitant]
     Route: 065
  10. INIPOMP [Concomitant]
     Route: 065
  11. TENORMIN [Concomitant]
     Route: 065
  12. ELISOR [Concomitant]
     Route: 065

REACTIONS (2)
  - BACTERIA STOOL IDENTIFIED [None]
  - DIARRHOEA [None]
